FAERS Safety Report 24760586 (Version 1)
Quarter: 2024Q4

REPORT INFORMATION
  Report Type: Spontaneous
  Country: US (occurrence: None)
  Receive Date: 20241220
  Receipt Date: 20241220
  Transmission Date: 20250114
  Serious: Yes (Hospitalization)
  Sender: Public
  Company Number: None

PATIENT
  Sex: Male

DRUGS (1)
  1. NEUPOGEN [Suspect]
     Active Substance: FILGRASTIM
     Indication: B-cell lymphoma
     Dosage: 0.65ML  SQ??FREQUENCY: INJECT 0.65 ML UNDER THE SKIN  1 TIME EACH DAY FOR 14 DAYS OF 21 DAYS CHEMOTH
     Route: 058
     Dates: start: 202412

REACTIONS (1)
  - Febrile neutropenia [None]
